FAERS Safety Report 6065112-8 (Version None)
Quarter: 2009Q1

REPORT INFORMATION
  Report Type: 
  Country: None (occurrence: None)
  Receive Date: 20090204
  Receipt Date: 20090126
  Transmission Date: 20090719
  Serious: Yes (Death, Other)
  Sender: FDA-Public Use
  Company Number: US-ELI_LILLY_AND_COMPANY-US200901005373

PATIENT
  Age: 47 Year
  Sex: Female

DRUGS (4)
  1. PROZAC [Suspect]
  2. BUPROPION HCL [Concomitant]
  3. CYPROHEPTADINE HCL [Concomitant]
  4. ACETAMINOPHEN AND HYDROCODONE BITARTRATE [Concomitant]

REACTIONS (14)
  - AGGRESSION [None]
  - AGITATION [None]
  - CARDIAC ARREST [None]
  - COMPLETED SUICIDE [None]
  - CONVULSION [None]
  - DRUG SCREEN POSITIVE [None]
  - HALLUCINATION [None]
  - HEPATOCELLULAR INJURY [None]
  - HYPOTENSION [None]
  - INTENTIONAL OVERDOSE [None]
  - LETHARGY [None]
  - LOBAR PNEUMONIA [None]
  - RESTLESSNESS [None]
  - VOMITING [None]
